FAERS Safety Report 13112850 (Version 2)
Quarter: 2017Q2

REPORT INFORMATION
  Report Type: Spontaneous
  Country: JP (occurrence: JP)
  Receive Date: 20170113
  Receipt Date: 20170526
  Transmission Date: 20170830
  Serious: Yes (Other)
  Sender: FDA-Public Use
  Company Number: PHJP2017JP001155

PATIENT
  Sex: Female

DRUGS (2)
  1. AFINITOR [Suspect]
     Active Substance: EVEROLIMUS
     Indication: BREAST CANCER RECURRENT
     Dosage: 5 MG, QD
     Route: 048
     Dates: start: 20151120, end: 20160713
  2. EXEMESTANE. [Concomitant]
     Active Substance: EXEMESTANE
     Indication: PRODUCT USED FOR UNKNOWN INDICATION
     Dosage: 25 MG, UNK
     Route: 048
     Dates: start: 20151120, end: 20160713

REACTIONS (1)
  - Carcinoembryonic antigen increased [Unknown]

NARRATIVE: CASE EVENT DATE: 20160713
